FAERS Safety Report 10375374 (Version 1)
Quarter: 2014Q1

REPORT INFORMATION
  Report Type: Spontaneous
  Country: US (occurrence: None)
  Receive Date: 20140306
  Receipt Date: 20140306
  Transmission Date: 20141002
  Serious: Yes (Disabling, Other)
  Sender: FDA-Public Use
  Company Number: 163-21880-13011000

PATIENT
  Age: 82 Year
  Sex: Female
  Weight: 126 kg

DRUGS (4)
  1. REVLIMID (LENALIDOMIDE) (25 MILLIGRAM, CAPSULES) [Suspect]
     Indication: PLASMA CELL MYELOMA
     Dosage: 25MG, FOR 12 CYCLES, PO
     Route: 048
     Dates: start: 20110816, end: 201207
  2. PROCRIT (ERYTHROPOIETIN) [Concomitant]
  3. DECADRON (DEXAMETHASONE) [Concomitant]
  4. ASA (ACETYLSALICYLIC ACID) [Concomitant]

REACTIONS (1)
  - Plasma cell myeloma [None]
